FAERS Safety Report 18801578 (Version 1)
Quarter: 2021Q1

REPORT INFORMATION
  Report Type: Spontaneous
  Country: DE (occurrence: DE)
  Receive Date: 20210128
  Receipt Date: 20210128
  Transmission Date: 20210419
  Serious: Yes (Other)
  Sender: FDA-Public Use
  Company Number: DE-TEVA-2021-DE-1873043

PATIENT
  Age: 73 Year
  Sex: Female
  Weight: 90 kg

DRUGS (2)
  1. TORASEMID [Suspect]
     Active Substance: TORSEMIDE
     Indication: CARDIAC FAILURE
     Dosage: 20 MG 1?1/2?0, UNIT DOSE: 30MG
     Route: 048
     Dates: start: 20200811, end: 20201218
  2. HEPARIN [Suspect]
     Active Substance: HEPARIN SODIUM
     Dosage: USE FOR 7 DAYS

REACTIONS (1)
  - Acute myeloid leukaemia [Recovered/Resolved with Sequelae]
